FAERS Safety Report 12239318 (Version 1)
Quarter: 2016Q2

REPORT INFORMATION
  Report Type: Spontaneous
  Country: US (occurrence: US)
  Receive Date: 20160405
  Receipt Date: 20160405
  Transmission Date: 20160815
  Serious: Yes (Other)
  Sender: FDA-Public Use
  Company Number: US-TEVA-647956USA

PATIENT
  Age: 62 Year
  Sex: Female

DRUGS (1)
  1. NITROFURANTOIN. [Suspect]
     Active Substance: NITROFURANTOIN
     Indication: PROPHYLAXIS URINARY TRACT INFECTION
     Dosage: 100 MILLIGRAM DAILY;
     Route: 065

REACTIONS (5)
  - Toxicity to various agents [Recovering/Resolving]
  - Interstitial lung disease [Recovering/Resolving]
  - Pulmonary toxicity [Recovering/Resolving]
  - Hepatotoxicity [Recovering/Resolving]
  - Non-small cell lung cancer stage IV [Recovering/Resolving]
